FAERS Safety Report 13755623 (Version 3)
Quarter: 2017Q3

REPORT INFORMATION
  Report Type: Spontaneous
  Country: US (occurrence: US)
  Receive Date: 20170714
  Receipt Date: 20170817
  Transmission Date: 20171127
  Serious: Yes (Other)
  Sender: FDA-Public Use
  Company Number: US-009507513-1707USA002452

PATIENT
  Age: 54 Year
  Sex: Male

DRUGS (6)
  1. XANAX [Concomitant]
     Active Substance: ALPRAZOLAM
  2. OXYCODONE [Concomitant]
     Active Substance: OXYCODONE
  3. REBETOL [Concomitant]
     Active Substance: RIBAVIRIN
  4. ZEPATIER [Suspect]
     Active Substance: ELBASVIR\GRAZOPREVIR
     Indication: HEPATITIS C
     Dosage: UNK
     Route: 048
     Dates: start: 20170523
  5. FLONASE [Concomitant]
     Active Substance: FLUTICASONE PROPIONATE
  6. SOVALDI [Concomitant]
     Active Substance: SOFOSBUVIR

REACTIONS (8)
  - Productive cough [Unknown]
  - Pain [Not Recovered/Not Resolved]
  - Lower respiratory tract infection [Unknown]
  - Rash [Unknown]
  - Cough [Unknown]
  - Anxiety [Not Recovered/Not Resolved]
  - Fatigue [Not Recovered/Not Resolved]
  - Fatigue [Unknown]

NARRATIVE: CASE EVENT DATE: 2017
